FAERS Safety Report 14348228 (Version 2)
Quarter: 2018Q1

REPORT INFORMATION
  Report Type: Spontaneous
  Country: US (occurrence: US)
  Receive Date: 20180103
  Receipt Date: 20180126
  Transmission Date: 20180509
  Serious: Yes (Death, Other)
  Sender: FDA-Public Use
  Company Number: US-GLAXOSMITHKLINE-US2017GSK202315

PATIENT
  Age: 41 Year
  Sex: Male

DRUGS (1)
  1. VENTOLIN [Suspect]
     Active Substance: ALBUTEROL SULFATE
     Indication: ASTHMA
     Dosage: UNK
     Dates: start: 201704

REACTIONS (3)
  - Cardiomegaly [Fatal]
  - Hypertension [Unknown]
  - Alcoholism [Unknown]

NARRATIVE: CASE EVENT DATE: 20171217
